FAERS Safety Report 6349250-8 (Version None)
Quarter: 2009Q3

REPORT INFORMATION
  Report Type: 
  Country: None (occurrence: None)
  Receive Date: 20090911
  Receipt Date: 20090902
  Transmission Date: 20100115
  Serious: Yes (Congenital Anomaly)
  Sender: FDA-Public Use
  Company Number: A0748174A

PATIENT
  Sex: Male

DRUGS (2)
  1. PAXIL [Suspect]
     Indication: ANXIETY
     Dosage: 10MG PER DAY
     Dates: start: 19960801, end: 20020101
  2. TYLENOL (CAPLET) [Concomitant]

REACTIONS (4)
  - DEAFNESS [None]
  - DRUG EXPOSURE DURING PREGNANCY [None]
  - EAR INFECTION [None]
  - MULTIPLE CONGENITAL ABNORMALITIES [None]
